FAERS Safety Report 8896043 (Version 3)
Quarter: 2012Q4

REPORT INFORMATION
  Report Type: 
  Country: GR (occurrence: GR)
  Receive Date: 20121108
  Receipt Date: 20121210
  Transmission Date: 20130627
  Serious: Yes (Hospitalization, Other)
  Sender: FDA-Public Use
  Company Number: PHHY2012GR101721

PATIENT
  Age: 65 Year
  Sex: Female

DRUGS (3)
  1. SANDOSTATIN LAR [Suspect]
     Indication: ACROMEGALY
     Dosage: 30 mg per 28 days
  2. SANDOSTATIN LAR [Suspect]
     Dosage: UNK UKN, UNK
  3. SANDOSTATIN LAR [Suspect]
     Dosage: UNK UKN, UNK

REACTIONS (5)
  - Fractured ischium [Unknown]
  - Incision site abscess [Unknown]
  - Pyrexia [Unknown]
  - Skin necrosis [Recovered/Resolved]
  - Inflammation [Recovered/Resolved]
